FAERS Safety Report 4818204-2 (Version None)
Quarter: 2005Q4

REPORT INFORMATION
  Report Type: 
  Country: None (occurrence: None)
  Receive Date: 20051101
  Receipt Date: 20051101
  Transmission Date: 20060501
  Serious: Yes (Life-Threatening, Hospitalization, Disabling)
  Sender: FDA-Public Use
  Company Number: None

PATIENT
  Age: 38 Year
  Sex: Female
  Weight: 59 kg

DRUGS (4)
  1. PHENTERMINE HCL [Suspect]
     Indication: WEIGHT CONTROL
  2. HERBALS [Concomitant]
  3. LAXATIVES [Concomitant]
  4. ^DIET PILLS^ [Concomitant]

REACTIONS (7)
  - BLOOD PRESSURE INCREASED [None]
  - CEREBRAL HAEMORRHAGE [None]
  - COMA [None]
  - FALL [None]
  - HEMIPARESIS [None]
  - HYPERGLYCAEMIA [None]
  - HYPOKALAEMIA [None]
